FAERS Safety Report 20799108 (Version 4)
Quarter: 2022Q3

REPORT INFORMATION
  Report Type: Report from Study
  Country: US (occurrence: US)
  Receive Date: 20220508
  Receipt Date: 20220915
  Transmission Date: 20221026
  Serious: Yes (Hospitalization, Disabling, Other)
  Sender: FDA-Public Use
  Company Number: US-CELGENE-USA-20220203540

PATIENT
  Age: 61 Year
  Sex: Female
  Weight: 95.25 kg

DRUGS (4)
  1. REVLIMID [Suspect]
     Active Substance: LENALIDOMIDE
     Indication: Product used for unknown indication
  2. XANAX [Concomitant]
     Active Substance: ALPRAZOLAM
     Indication: Product used for unknown indication
  3. LEXAPRO [Concomitant]
     Active Substance: ESCITALOPRAM OXALATE
     Indication: Product used for unknown indication
  4. TRAZODONE HCL [Concomitant]
     Active Substance: TRAZODONE HYDROCHLORIDE
     Indication: Product used for unknown indication

REACTIONS (12)
  - Diarrhoea [Unknown]
  - Constipation [Unknown]
  - Pruritus [Unknown]
  - Abdominal pain upper [Unknown]
  - Multiple fractures [Unknown]
  - Rash pustular [Unknown]
  - Dyspepsia [Unknown]
  - Bone lesion [Unknown]
  - Product dose omission issue [Unknown]
  - Red blood cell count decreased [Unknown]
  - White blood cell count decreased [Unknown]
  - Gastrointestinal pain [Unknown]
